FAERS Safety Report 9629397 (Version 1)
Quarter: 2013Q4

REPORT INFORMATION
  Report Type: Spontaneous
  Country: US (occurrence: US)
  Receive Date: 20131017
  Receipt Date: 20131017
  Transmission Date: 20140711
  Serious: No
  Sender: FDA-Public Use
  Company Number: US-ASTRAZENECA-2013SE56211

PATIENT
  Age: 65 Year
  Sex: Female
  Weight: 59 kg

DRUGS (3)
  1. CRESTOR [Suspect]
     Indication: BLOOD CHOLESTEROL INCREASED
     Route: 048
     Dates: start: 2011
  2. LEVOTHYROXINE [Concomitant]
     Indication: THYROID DISORDER
     Dosage: .75 HALF TABLET 1 TIME A WEEK
  3. SYNTHROID [Concomitant]

REACTIONS (2)
  - Coeliac disease [Not Recovered/Not Resolved]
  - Intentional drug misuse [Unknown]
